FAERS Safety Report 6523939-X (Version None)
Quarter: 2009Q4

REPORT INFORMATION
  Report Type: 
  Country: None (occurrence: None)
  Receive Date: 20091231
  Receipt Date: 20091222
  Transmission Date: 20100525
  Serious: Yes (Hospitalization, Other)
  Sender: FDA-Public Use
  Company Number: BR-ABBOTT-09P-020-0616060-00

PATIENT
  Sex: Female
  Weight: 56 kg

DRUGS (6)
  1. HUMIRA [Suspect]
     Indication: RHEUMATOID ARTHRITIS
     Route: 058
     Dates: start: 20081101, end: 20091011
  2. HUMIRA [Suspect]
     Dates: start: 20091125
  3. METHOTREXATE [Concomitant]
     Indication: RHEUMATOID ARTHRITIS
     Route: 048
  4. PREDNISONE [Concomitant]
     Indication: RHEUMATOID ARTHRITIS
     Route: 048
     Dates: end: 20090401
  5. CALCIUM W/VITAMIN D [Concomitant]
     Indication: OSTEOPOROSIS
     Route: 048
     Dates: start: 19940101
  6. RISEDRONATE SODIUM [Concomitant]
     Indication: OSTEOPOROSIS
     Route: 048
     Dates: start: 20040101

REACTIONS (6)
  - BLOOD CHOLESTEROL INCREASED [None]
  - FATIGUE [None]
  - NEPHROLITHIASIS [None]
  - OVARIAN FIBROMA [None]
  - POSTOPERATIVE WOUND INFECTION [None]
  - WEIGHT INCREASED [None]
